FAERS Safety Report 9967930 (Version 1)
Quarter: 2014Q1

REPORT INFORMATION
  Report Type: Report from Study
  Country: US (occurrence: US)
  Receive Date: 20140306
  Receipt Date: 20140306
  Transmission Date: 20141002
  Serious: No
  Sender: FDA-Public Use
  Company Number: US-ABBVIE-13P-163-1139978-00

PATIENT
  Sex: Female
  Weight: 88.98 kg

DRUGS (1)
  1. HUMIRA [Suspect]
     Indication: PUSTULAR PSORIASIS
     Dates: start: 2013

REACTIONS (5)
  - Pruritus [Unknown]
  - Pruritus [Unknown]
  - Pruritus [Unknown]
  - Skin fissures [Unknown]
  - Off label use [Unknown]
